FAERS Safety Report 5105837-1 (Version None)
Quarter: 2006Q3

REPORT INFORMATION
  Report Type: 
  Country: None (occurrence: None)
  Receive Date: 20060915
  Receipt Date: 20060901
  Transmission Date: 20061208
  Serious: Yes (Life-Threatening, Other)
  Sender: FDA-Public Use
  Company Number: CA-GLAXOSMITHKLINE-A0618966A

PATIENT
  Age: 82 Year
  Sex: Male

DRUGS (4)
  1. AVODART [Suspect]
     Indication: URINARY TRACT DISORDER
     Route: 065
     Dates: start: 20060201
  2. NORVASC [Concomitant]
     Dosage: 5MG PER DAY
  3. ASPIRIN [Concomitant]
     Dosage: 81MG PER DAY
  4. VITAMINS [Concomitant]

REACTIONS (1)
  - TESTIS CANCER [None]
